FAERS Safety Report 11992277 (Version 1)
Quarter: 2016Q1

REPORT INFORMATION
  Report Type: Spontaneous
  Country: US (occurrence: US)
  Receive Date: 20160203
  Receipt Date: 20160203
  Transmission Date: 20160526
  Serious: No
  Sender: FDA-Public Use
  Company Number: US-JNJFOC-20160103011

PATIENT
  Age: 51 Year
  Sex: Male
  Weight: 85.28 kg

DRUGS (3)
  1. TYLENOL 8 HR ARTHRITIS PAIN [Suspect]
     Active Substance: ACETAMINOPHEN
     Route: 048
  2. TYLENOL 8 HR ARTHRITIS PAIN [Suspect]
     Active Substance: ACETAMINOPHEN
     Indication: ARTHRALGIA
     Dosage: 2-3 TIMES PER DAY, 2 CAPLETS
     Route: 048
  3. EXTRA STRENGTH TYLENOL PM [Suspect]
     Active Substance: ACETAMINOPHEN\DIPHENHYDRAMINE HYDROCHLORIDE
     Indication: ARTHRALGIA
     Dosage: 3-4 TIMES A WEEK BEFORE BED
     Route: 048

REACTIONS (1)
  - Drug administration error [Unknown]
